FAERS Safety Report 6804119-7 (Version None)
Quarter: 2010Q2

REPORT INFORMATION
  Report Type: 
  Country: None (occurrence: None)
  Receive Date: 20100628
  Receipt Date: 20070302
  Transmission Date: 20101027
  Serious: No
  Sender: FDA-Public Use
  Company Number: US-PFIZER INC-2006114847

PATIENT
  Sex: Female
  Weight: 74.84 kg

DRUGS (2)
  1. CABERGOLINE [Suspect]
     Indication: PITUITARY TUMOUR BENIGN
     Dosage: 2 EVERY 1 WEEKS
     Dates: start: 20060704
  2. DOSTINEX [Suspect]
     Dosage: 2 EVERY 1 WEEKS
     Dates: end: 20060927

REACTIONS (5)
  - BLOOD PROLACTIN INCREASED [None]
  - FATIGUE [None]
  - INSOMNIA [None]
  - MOOD ALTERED [None]
  - WEIGHT DECREASED [None]
